FAERS Safety Report 5493226-X (Version None)
Quarter: 2007Q4

REPORT INFORMATION
  Report Type: 
  Country: None (occurrence: None)
  Receive Date: 20071023
  Receipt Date: 20071017
  Transmission Date: 20080405
  Serious: Yes (Hospitalization)
  Sender: FDA-Public Use
  Company Number: B0492283A

PATIENT
  Age: 69 Year
  Sex: Female

DRUGS (4)
  1. AUGMENTIN '125' [Suspect]
     Dosage: 3G PER DAY
     Route: 048
     Dates: start: 20070716, end: 20070719
  2. ASPIRIN [Concomitant]
     Dates: start: 20070101, end: 20070719
  3. RAMIPRIL [Concomitant]
     Route: 048
     Dates: start: 20070101, end: 20070719
  4. LERCANIDIPINE [Concomitant]
     Route: 048
     Dates: start: 20070101, end: 20070719

REACTIONS (3)
  - DYSPNOEA [None]
  - PRURITUS [None]
  - URTICARIA [None]
